FAERS Safety Report 14378924 (Version 2)
Quarter: 2018Q1

REPORT INFORMATION
  Report Type: Spontaneous
  Country: FR (occurrence: FR)
  Receive Date: 20180112
  Receipt Date: 20180214
  Transmission Date: 20180509
  Serious: Yes (Death, Other)
  Sender: FDA-Public Use
  Company Number: FR-CIPLA LTD.-2018FR00064

PATIENT

DRUGS (1)
  1. SERTRALINE [Suspect]
     Active Substance: SERTRALINE HYDROCHLORIDE
     Indication: DEPRESSION
     Dosage: 50 MG, UNK
     Route: 048
     Dates: start: 20170901, end: 20170910

REACTIONS (2)
  - Pancreatitis acute [Recovered/Resolved]
  - Hepatitis acute [Fatal]

NARRATIVE: CASE EVENT DATE: 20170910
